FAERS Safety Report 19092968 (Version 3)
Quarter: 2021Q2

REPORT INFORMATION
  Report Type: Report from Study
  Country: UA (occurrence: UA)
  Receive Date: 20210405
  Receipt Date: 20210521
  Transmission Date: 20210717
  Serious: Yes (Hospitalization, Disabling)
  Sender: FDA-Public Use
  Company Number: UA-CELGENEUS-UKR-20210307823

PATIENT
  Age: 62 Year
  Sex: Female
  Weight: 89.2 kg

DRUGS (11)
  1. TIVORTIN [Concomitant]
     Active Substance: ARGININE HYDROCHLORIDE
     Indication: ASTHENIA
     Dosage: 100 MILLIGRAM
     Route: 041
     Dates: start: 20210401, end: 20210405
  2. OZANIMOD. [Suspect]
     Active Substance: OZANIMOD
     Indication: CROHN^S DISEASE
     Route: 048
     Dates: start: 20200319
  3. OZANIMOD. [Suspect]
     Active Substance: OZANIMOD
     Route: 048
     Dates: start: 20200615, end: 20210329
  4. SALOFALK [Concomitant]
     Indication: CROHN^S DISEASE
     Route: 048
     Dates: start: 20190514
  5. CREON [Concomitant]
     Active Substance: PANCRELIPASE AMYLASE\PANCRELIPASE LIPASE\PANCRELIPASE PROTEASE
     Indication: CROHN^S DISEASE
     Dosage: 75000 IU (INTERNATIONAL UNIT)
     Route: 048
     Dates: start: 20190514
  6. ROSUVASTATIN. [Concomitant]
     Active Substance: ROSUVASTATIN
     Indication: MYOCARDIAL ISCHAEMIA
     Dosage: 10 MILLIGRAM
     Route: 048
     Dates: start: 20210405
  7. CORVASAN [Concomitant]
     Indication: MYOCARDIAL ISCHAEMIA
     Dosage: 12.5 MILLIGRAM
     Route: 048
     Dates: start: 20180604
  8. RIVAROXABAN [Concomitant]
     Active Substance: RIVAROXABAN
     Indication: MYOCARDIAL ISCHAEMIA
     Dosage: 20 MILLIGRAM
     Route: 048
     Dates: start: 20210405
  9. OZANIMOD. [Suspect]
     Active Substance: OZANIMOD
     Route: 048
     Dates: start: 20210420
  10. DIFORS 160 [Concomitant]
     Indication: HYPERTENSION
     Dosage: 1 TABLET
     Route: 048
     Dates: start: 20180604, end: 20210405
  11. MEBEVERINE [Concomitant]
     Active Substance: MEBEVERINE
     Indication: CROHN^S DISEASE
     Dosage: 400 MILLIGRAM
     Route: 048
     Dates: start: 20190514

REACTIONS (1)
  - COVID-19 pneumonia [Recovered/Resolved]

NARRATIVE: CASE EVENT DATE: 20210319
